FAERS Safety Report 15485514 (Version 2)
Quarter: 2018Q4

REPORT INFORMATION
  Report Type: Spontaneous
  Country: JP (occurrence: JP)
  Receive Date: 20181010
  Receipt Date: 20181219
  Transmission Date: 20190205
  Serious: Yes (Other)
  Sender: FDA-Public Use
  Company Number: PHJP2018JP017359

PATIENT
  Age: 68 Year
  Sex: Male

DRUGS (1)
  1. CARBAMAZEPINE. [Suspect]
     Active Substance: CARBAMAZEPINE
     Indication: TRIGEMINAL NEURALGIA
     Dosage: UNK
     Route: 048

REACTIONS (5)
  - Toxic skin eruption [Unknown]
  - Rash [Unknown]
  - Lymphocyte morphology abnormal [Unknown]
  - Hepatic function abnormal [Unknown]
  - Eosinophil count increased [Unknown]
